FAERS Safety Report 9759781 (Version 2)
Quarter: 2013Q4

REPORT INFORMATION
  Report Type: Spontaneous
  Country: US (occurrence: US)
  Receive Date: 20131216
  Receipt Date: 20131216
  Transmission Date: 20140711
  Serious: No
  Sender: FDA-Public Use
  Company Number: US-GILEAD-2010-0028581

PATIENT
  Sex: Female
  Weight: 70.76 kg

DRUGS (18)
  1. LETAIRIS [Suspect]
     Indication: PULMONARY ARTERIAL HYPERTENSION
     Route: 048
     Dates: start: 20080102
  2. LASIX [Concomitant]
  3. PREDNISOLONE [Concomitant]
  4. VITAMIN D [Concomitant]
  5. HYOMAX-SL [Concomitant]
  6. NORTRIPTYLINE HCL [Concomitant]
  7. LISINOPRIL [Concomitant]
  8. CEPHADROXIL [Concomitant]
  9. FOSAMAX [Concomitant]
  10. METHOTREXATE [Concomitant]
  11. DIOVAN [Concomitant]
  12. NASONEX [Concomitant]
  13. FOLIC ACID [Concomitant]
  14. HYDROCHLOROTHIAZIDE [Concomitant]
  15. PULMICORT [Concomitant]
  16. NEXIUM [Concomitant]
  17. HYDROXYCHLOROQUINE [Concomitant]
  18. POTASSIUM CHLORIDE [Concomitant]

REACTIONS (1)
  - Blood pressure decreased [Unknown]
